FAERS Safety Report 23535462 (Version 1)
Quarter: 2024Q1

REPORT INFORMATION
  Report Type: Report from Study
  Country: US (occurrence: None)
  Receive Date: 20240218
  Receipt Date: 20240218
  Transmission Date: 20240410
  Serious: Yes (Hospitalization)
  Sender: FDA-Public Use
  Company Number: 2024A038298

PATIENT
  Sex: Male
  Weight: 83.9 kg

DRUGS (1)
  1. LYNPARZA [Suspect]
     Active Substance: OLAPARIB
     Indication: Prostate cancer
     Route: 048

REACTIONS (4)
  - Thrombosis [Recovering/Resolving]
  - Nausea [Unknown]
  - Fatigue [Unknown]
  - Product dose omission in error [Unknown]
